FAERS Safety Report 7593857-7 (Version None)
Quarter: 2011Q3

REPORT INFORMATION
  Report Type: 
  Country: None (occurrence: None)
  Receive Date: 20110706
  Receipt Date: 20110624
  Transmission Date: 20111222
  Serious: Yes (Hospitalization)
  Sender: FDA-Public Use
  Company Number: US-UCBSA-033620

PATIENT
  Sex: Male
  Weight: 45.4 kg

DRUGS (3)
  1. CERTOLIZUMAB PEGOL [Suspect]
     Indication: CROHN'S DISEASE
     Route: 058
     Dates: start: 20100419, end: 20101028
  2. CERTOLIZUMAB PEGOL [Suspect]
     Route: 058
     Dates: start: 20101118
  3. IBUPROFEN [Concomitant]
     Indication: PYREXIA
     Dates: start: 20110516, end: 20110517

REACTIONS (1)
  - PANCREATITIS VIRAL [None]
